FAERS Safety Report 9124152 (Version 2)
Quarter: 2018Q2

REPORT INFORMATION
  Report Type: Spontaneous
  Country: US (occurrence: US)
  Receive Date: 20130227
  Receipt Date: 20180622
  Transmission Date: 20180711
  Serious: Yes (Hospitalization, Disabling, Other)
  Sender: FDA-Public Use
  Company Number: US-ASTRAZENECA-2013SE11325

PATIENT
  Age: 562 Month
  Sex: Male

DRUGS (6)
  1. BRILINTA [Interacting]
     Active Substance: TICAGRELOR
     Indication: MYOCARDIAL INFARCTION
     Route: 048
     Dates: start: 20130125
  2. LISINOPRIL. [Suspect]
     Active Substance: LISINOPRIL
     Dosage: 10.0MG UNKNOWN
     Route: 048
  3. CRESTOR [Suspect]
     Active Substance: ROSUVASTATIN CALCIUM
     Indication: LIPIDS ABNORMAL
     Route: 048
     Dates: start: 201211, end: 201302
  4. OXYCODONE [Concomitant]
     Active Substance: OXYCODONE
     Indication: PAIN
  5. CRESTOR [Interacting]
     Active Substance: ROSUVASTATIN CALCIUM
     Indication: LOW DENSITY LIPOPROTEIN INCREASED
     Route: 048
     Dates: start: 201211, end: 201302
  6. HYDROCODONE [Concomitant]
     Active Substance: HYDROCODONE
     Indication: PAIN

REACTIONS (6)
  - Chest pain [Unknown]
  - Drug interaction [Unknown]
  - Rhabdomyolysis [Unknown]
  - Pain in extremity [Unknown]
  - Gait disturbance [Unknown]
  - Myocardial infarction [Unknown]

NARRATIVE: CASE EVENT DATE: 201301
